FAERS Safety Report 15452631 (Version 1)
Quarter: 2018Q4

REPORT INFORMATION
  Report Type: Report from Study
  Country: IT (occurrence: IT)
  Receive Date: 20181001
  Receipt Date: 20181001
  Transmission Date: 20190204
  Serious: Yes (Hospitalization)
  Sender: FDA-Public Use
  Company Number: PHHY2018IT076946

PATIENT
  Age: 71 Year
  Sex: Female

DRUGS (5)
  1. REQUIP [Suspect]
     Active Substance: ROPINIROLE HYDROCHLORIDE
     Dosage: 1 DF (8 MG, QD
     Route: 048
     Dates: start: 20100423
  2. STALEVO [Suspect]
     Active Substance: CARBIDOPA\ENTACAPONE\LEVODOPA
     Dosage: 1 DF, QD (UNKNOWN STRENGTH)
     Route: 048
  3. REQUIP [Suspect]
     Active Substance: ROPINIROLE HYDROCHLORIDE
     Indication: PARKINSONISM
     Dosage: 1 DF (2 MG), QD
     Route: 048
     Dates: start: 20100423
  4. STALEVO [Suspect]
     Active Substance: CARBIDOPA\ENTACAPONE\LEVODOPA
     Indication: PARKINSONISM
     Dosage: 3 DF (CARBIDOPA 18.75MG, ENTACAPONE 200MG AND LEVODOPA 75MG), QD
     Route: 048
     Dates: start: 20141101
  5. REQUIP [Suspect]
     Active Substance: ROPINIROLE HYDROCHLORIDE
     Dosage: 1 DF (4MG), QD
     Route: 048
     Dates: start: 20100423

REACTIONS (6)
  - Somnolence [Recovering/Resolving]
  - Dreamy state [Recovering/Resolving]
  - Fall [Recovering/Resolving]
  - Illusion [Recovering/Resolving]
  - Spinal fracture [Recovering/Resolving]
  - Orthostatic hypotension [Recovering/Resolving]

NARRATIVE: CASE EVENT DATE: 20161001
